FAERS Safety Report 7906902 (Version 3)
Quarter: 2013Q1

REPORT INFORMATION
  Report Type: Spontaneous
  Country: KR (occurrence: KR)
  Receive Date: 20110420
  Receipt Date: 20130215
  Transmission Date: 20140127
  Serious: Yes (Death)
  Sender: FDA-Public Use
  Company Number: KR-EISAI INC-E2020-08989-SPO-KR

PATIENT
  Age: 81 Year
  Sex: Male
  Weight: 55 kg

DRUGS (3)
  1. ARICEPT [Suspect]
     Indication: DEMENTIA ALZHEIMER^S TYPE
     Route: 048
     Dates: start: 20101221
  2. AMIKACIN SULFATE [Concomitant]
     Indication: INFLAMMATION
     Dosage: 2 AMP
     Route: 042
     Dates: start: 20101215, end: 20101225
  3. CEFTRIAXONE [Concomitant]
     Indication: INFLAMMATION
     Dosage: 4000 MG
     Route: 042
     Dates: start: 20101215, end: 20101225

REACTIONS (2)
  - Cardiac arrest [Fatal]
  - Confusional state [Not Recovered/Not Resolved]
